FAERS Safety Report 8388333-8 (Version None)
Quarter: 2012Q2

REPORT INFORMATION
  Report Type: 
  Country: None (occurrence: None)
  Receive Date: 20120525
  Receipt Date: 20120523
  Transmission Date: 20120825
  Serious: Yes (Hospitalization, Other)
  Sender: FDA-Public Use
  Company Number: JP-TEVA-336269USA

PATIENT
  Sex: Male

DRUGS (7)
  1. VALACICLOVIR [Concomitant]
     Indication: INFECTION PROPHYLAXIS
     Dates: start: 20120413, end: 20120423
  2. RITUXIMAB [Concomitant]
     Dates: start: 20120416, end: 20120416
  3. TREANDA [Suspect]
     Indication: LYMPHOPLASMACYTOID LYMPHOMA/IMMUNOCYTOMA
     Route: 042
     Dates: start: 20120416
  4. BACTRIM [Concomitant]
     Dates: start: 20120413, end: 20120423
  5. ALLOPURINOL [Concomitant]
  6. MAGNESIUM OXIDE [Concomitant]
  7. PIOGLITAZONE [Concomitant]
     Indication: TYPE 2 DIABETES MELLITUS
     Dates: start: 20120412

REACTIONS (14)
  - ASPARTATE AMINOTRANSFERASE INCREASED [None]
  - ALANINE AMINOTRANSFERASE INCREASED [None]
  - BLOOD ALKALINE PHOSPHATASE INCREASED [None]
  - HEPATITIS B SURFACE ANTIBODY POSITIVE [None]
  - JAUNDICE [None]
  - ANTIMITOCHONDRIAL ANTIBODY POSITIVE [None]
  - BLOOD LACTATE DEHYDROGENASE INCREASED [None]
  - BLOOD BILIRUBIN INCREASED [None]
  - BILIRUBIN CONJUGATED INCREASED [None]
  - GAMMA-GLUTAMYLTRANSFERASE INCREASED [None]
  - PYREXIA [None]
  - LIVER INJURY [None]
  - LIVER DISORDER [None]
  - INFECTION [None]
